FAERS Safety Report 8854185 (Version 1)
Quarter: 2012Q4

REPORT INFORMATION
  Report Type: Spontaneous
  Country: US (occurrence: None)
  Receive Date: 20121025
  Receipt Date: 20121025
  Transmission Date: 20130627
  Serious: Yes (Hospitalization)
  Sender: FDA-Public Use
  Company Number: None

PATIENT
  Age: 87 None
  Sex: Male

DRUGS (5)
  1. FEBURIC (FEBUXOSTAT) [Suspect]
     Dosage: 0.5 DF (0.5 DF, 1 in 1 D)
     Route: 048
     Dates: start: 20120828, end: 20121003
  2. TAKEPRON (LANSOPRAZOLE) [Concomitant]
  3. LASIX (FUROSEMIDE) [Concomitant]
  4. ALDACTONE A (SPIRONOLACTONE) [Concomitant]
  5. WARFARIN (WARFARIN) [Concomitant]

REACTIONS (1)
  - Hepatitis fulminant [None]
